FAERS Safety Report 15357161 (Version 1)
Quarter: 2018Q3

REPORT INFORMATION
  Report Type: Report from Study
  Country: BR (occurrence: BR)
  Receive Date: 20180906
  Receipt Date: 20180906
  Transmission Date: 20181010
  Serious: Yes (Other)
  Sender: FDA-Public Use
  Company Number: PHHY2018BR015290

PATIENT
  Age: 23 Year
  Sex: Male
  Weight: 53.4 kg

DRUGS (3)
  1. ILARIS [Suspect]
     Active Substance: CANAKINUMAB
     Dosage: 150 MG, EVERY 2 MONTHS
     Route: 058
     Dates: start: 20180620
  2. ILARIS [Suspect]
     Active Substance: CANAKINUMAB
     Indication: FAMILIAL COLD AUTOINFLAMMATORY SYNDROME
     Dosage: 150 MG, Q2MO
     Route: 058
     Dates: start: 20150430
  3. ILARIS [Suspect]
     Active Substance: CANAKINUMAB
     Dosage: UNK
     Route: 065
     Dates: start: 20180412

REACTIONS (10)
  - Pericardial effusion [Not Recovered/Not Resolved]
  - Weight increased [Not Recovered/Not Resolved]
  - Movement disorder [Recovered/Resolved]
  - Mouth injury [Unknown]
  - Drug ineffective [Unknown]
  - Familial cold autoinflammatory syndrome [Recovering/Resolving]
  - Condition aggravated [Recovering/Resolving]
  - Neck pain [Not Recovered/Not Resolved]
  - Speech disorder [Unknown]
  - Pain in extremity [Recovered/Resolved]

NARRATIVE: CASE EVENT DATE: 20180527
